FAERS Safety Report 25668235 (Version 1)
Quarter: 2025Q3

REPORT INFORMATION
  Report Type: Spontaneous
  Country: US (occurrence: US)
  Receive Date: 20250812
  Receipt Date: 20250812
  Transmission Date: 20251021
  Serious: Yes (Hospitalization, Other)
  Sender: UNICHEM
  Company Number: US-UNICHEM LABORATORIES LIMITED-UNI-2025-US-002999

PATIENT

DRUGS (5)
  1. METRONIDAZOLE [Interacting]
     Active Substance: METRONIDAZOLE
     Indication: Pneumonia aspiration
     Route: 042
  2. METHADONE [Interacting]
     Active Substance: METHADONE HYDROCHLORIDE
     Indication: Drug dependence
     Route: 065
  3. METOCLOPRAMIDE [Interacting]
     Active Substance: METOCLOPRAMIDE
     Indication: Nausea
     Route: 042
  4. METOCLOPRAMIDE [Interacting]
     Active Substance: METOCLOPRAMIDE
     Indication: Vomiting
  5. CEFTRIAXONE [Concomitant]
     Active Substance: CEFTRIAXONE
     Indication: Pneumonia aspiration
     Route: 042

REACTIONS (2)
  - Torsade de pointes [Recovering/Resolving]
  - Drug interaction [Unknown]
